FAERS Safety Report 5685466-1 (Version None)
Quarter: 2008Q1

REPORT INFORMATION
  Report Type: 
  Country: None (occurrence: None)
  Receive Date: 20080328
  Receipt Date: 20080226
  Transmission Date: 20080703
  Serious: No
  Sender: FDA-Public Use
  Company Number: US-BAYER-200815775NA

PATIENT
  Age: 60 Year
  Sex: Male

DRUGS (8)
  1. AVELOX [Suspect]
     Indication: DRUG USE FOR UNKNOWN INDICATION
  2. DOXYCYCLINE [Suspect]
     Indication: INFECTION PROPHYLAXIS
  3. SEPTRA [Suspect]
     Indication: INFECTION PROPHYLAXIS
  4. SYMLIN [Suspect]
     Indication: DIABETES MELLITUS
     Route: 058
     Dates: start: 20080115
  5. SYMLIN [Suspect]
     Route: 058
     Dates: start: 20080101
  6. HUMALOG [Concomitant]
  7. LANTUS [Concomitant]
  8. BYETTA (EXENATIDE) INJECTION [Concomitant]

REACTIONS (4)
  - BLOOD GLUCOSE DECREASED [None]
  - CONFUSIONAL STATE [None]
  - DEPRESSED LEVEL OF CONSCIOUSNESS [None]
  - MENTAL IMPAIRMENT [None]
